FAERS Safety Report 14948541 (Version 1)
Quarter: 2018Q2

REPORT INFORMATION
  Report Type: Report from Study
  Country: CH (occurrence: CH)
  Receive Date: 20180529
  Receipt Date: 20180529
  Transmission Date: 20180711
  Serious: Yes (Other)
  Sender: FDA-Public Use
  Company Number: CH-MYLANLABS-2018M1034779

PATIENT
  Sex: Male

DRUGS (4)
  1. KENACORT [Concomitant]
     Active Substance: TRIAMCINOLONE
     Dosage: THIS ADMINISTRATION WAS FOLLOWED BY 3 INJECTIONS EVERY 2 MONTHS
     Route: 026
     Dates: start: 201006
  2. KENACORT [Concomitant]
     Active Substance: TRIAMCINOLONE
     Indication: GRANULOMA
     Dosage: UNK
     Route: 026
     Dates: start: 200909
  3. CALCITONIN SALMON. [Suspect]
     Active Substance: CALCITONIN SALMON
     Dosage: 100 IU, QD, FOR 18 MONTHS
     Route: 058
  4. CALCITONIN SALMON. [Suspect]
     Active Substance: CALCITONIN SALMON
     Indication: GRANULOMA
     Dosage: 70 IU, QD, LATER, ADMINISTERED AT 100IU DAILY FOR 18 MONTHS
     Route: 058
     Dates: start: 2009

REACTIONS (1)
  - Intracranial pressure increased [Unknown]

NARRATIVE: CASE EVENT DATE: 201103
